FAERS Safety Report 26054365 (Version 1)
Quarter: 2025Q4

REPORT INFORMATION
  Report Type: Spontaneous
  Country: US (occurrence: US)
  Receive Date: 20251117
  Receipt Date: 20251117
  Transmission Date: 20260117
  Serious: Yes (Other)
  Sender: ARS PHARMACEUTICALS OPERATIONS, INC.
  Company Number: US-ARS PHARMACEUTICALS OPERATIONS, INC.-2025ARP00175

PATIENT
  Age: 38 Year
  Sex: Female
  Weight: 52.154 kg

DRUGS (2)
  1. NEFFY [Suspect]
     Active Substance: EPINEPHRINE
     Indication: Anaphylactic reaction
     Dosage: 2 MG, ONCE
     Route: 045
     Dates: start: 20251102, end: 20251102
  2. NEFFY [Suspect]
     Active Substance: EPINEPHRINE
     Dosage: 2 MG, ONCE
     Route: 045
     Dates: start: 20251102, end: 20251102

REACTIONS (4)
  - Drug ineffective [Not Recovered/Not Resolved]
  - Feeling abnormal [Not Recovered/Not Resolved]
  - Emotional distress [Not Recovered/Not Resolved]
  - Therapeutic product effect delayed [Not Recovered/Not Resolved]

NARRATIVE: CASE EVENT DATE: 20251102
